FAERS Safety Report 7630919-X (Version None)
Quarter: 2011Q3

REPORT INFORMATION
  Report Type: 
  Country: None (occurrence: None)
  Receive Date: 20110725
  Receipt Date: 20110715
  Transmission Date: 20111222
  Serious: Yes (Hospitalization, Other)
  Sender: FDA-Public Use
  Company Number: JP-BRISTOL-MYERS SQUIBB COMPANY-15647753

PATIENT
  Age: 29 Year
  Sex: Male
  Weight: 65 kg

DRUGS (5)
  1. ETIZOLAM [Concomitant]
     Dosage: UPTO 19JAN2011.ALSO 1 MG/DAY
  2. RISPERDAL [Concomitant]
     Dosage: TABS
     Dates: end: 20110126
  3. ABILIFY [Suspect]
     Indication: SCHIZOPHRENIA
     Dosage: 12MG:27JAN11-09FEB11.10FEB11-23FEB11 14 DAYS.24MG 05MAR11-MAR11 6 MG:20JAN11-26JAN11.7 DAYS
     Route: 048
     Dates: start: 20110120
  4. LENDORMIN [Concomitant]
     Dosage: TABS
     Dates: end: 20110119
  5. SENNAL [Concomitant]
     Dosage: TAB,
     Dates: end: 20110223

REACTIONS (2)
  - SUICIDE ATTEMPT [None]
  - SCHIZOPHRENIA [None]
